FAERS Safety Report 18441075 (Version 5)
Quarter: 2021Q1

REPORT INFORMATION
  Report Type: Spontaneous
  Country: US (occurrence: US)
  Receive Date: 20201029
  Receipt Date: 20210218
  Transmission Date: 20210419
  Serious: Yes (Other)
  Sender: FDA-Public Use
  Company Number: US-AKCEA THERAPEUTICS-2020IS001509

PATIENT
  Age: 53 Year
  Sex: Female
  Weight: 78.09 kg

DRUGS (12)
  1. ISSD (INTEGRATED SYRINGE SAFETY DEVICE) [Suspect]
     Active Substance: DEVICE
  2. ATORVASTATIN [Concomitant]
     Active Substance: ATORVASTATIN
     Route: 048
  3. TEGSEDI [Suspect]
     Active Substance: INOTERSEN SODIUM
     Indication: HEREDITARY NEUROPATHIC AMYLOIDOSIS
     Route: 058
     Dates: start: 20200106
  4. LYRICA [Concomitant]
     Active Substance: PREGABALIN
     Route: 048
     Dates: start: 20200121, end: 20200419
  5. DIVALPROEX [Concomitant]
     Active Substance: DIVALPROEX SODIUM
     Route: 048
  6. METFORMIN [Concomitant]
     Active Substance: METFORMIN HYDROCHLORIDE
     Route: 048
  7. CYCLOBENZAPRINE. [Concomitant]
     Active Substance: CYCLOBENZAPRINE
     Route: 048
  8. ACETAMINOPHEN AND CODEINE [Concomitant]
     Active Substance: ACETAMINOPHEN\CODEINE PHOSPHATE
     Route: 048
  9. BACLOFEN. [Concomitant]
     Active Substance: BACLOFEN
     Route: 048
  10. DULOXETINE. [Concomitant]
     Active Substance: DULOXETINE
     Route: 048
  11. MEDROXYPROGESTERONE [Concomitant]
     Active Substance: MEDROXYPROGESTERONE
     Route: 048
  12. ASPIRIN /00002701/ [Concomitant]
     Active Substance: ASPIRIN
     Route: 048

REACTIONS (57)
  - Urinary retention [Unknown]
  - Urine abnormality [Not Recovered/Not Resolved]
  - Urine leukocyte esterase positive [Not Recovered/Not Resolved]
  - Dizziness [Unknown]
  - Vision blurred [Unknown]
  - Tongue paralysis [Unknown]
  - Muscle spasticity [Unknown]
  - Overweight [Unknown]
  - Pain [Unknown]
  - Headache [Unknown]
  - Muscular weakness [Unknown]
  - Glomerular filtration rate abnormal [Not Recovered/Not Resolved]
  - Weight increased [Unknown]
  - Nitrite urine present [Unknown]
  - Urinary sediment present [Not Recovered/Not Resolved]
  - Protein urine present [Not Recovered/Not Resolved]
  - Urinary occult blood positive [Not Recovered/Not Resolved]
  - Eyelid function disorder [Unknown]
  - Basophil count abnormal [Unknown]
  - Urine protein/creatinine ratio increased [Unknown]
  - Orthostatic hypotension [Unknown]
  - Contusion [Unknown]
  - Glucose urine present [Unknown]
  - White blood cells urine positive [Not Recovered/Not Resolved]
  - Ataxia [Unknown]
  - Nausea [Unknown]
  - Anal incontinence [Unknown]
  - Empty sella syndrome [Unknown]
  - Diabetic neuropathy [Unknown]
  - Red blood cells urine positive [Not Recovered/Not Resolved]
  - Confusional state [Unknown]
  - Pyrexia [Unknown]
  - Vertigo [Unknown]
  - Oedema peripheral [Unknown]
  - Alanine aminotransferase abnormal [Unknown]
  - Urinary casts [Unknown]
  - Asthenia [Unknown]
  - Stress [Unknown]
  - Retching [Unknown]
  - Infection [Unknown]
  - Walking aid user [Unknown]
  - Type 2 diabetes mellitus [Unknown]
  - Seizure [Unknown]
  - Blood creatinine increased [Not Recovered/Not Resolved]
  - Insomnia [Unknown]
  - Chest pain [Unknown]
  - Hypoaesthesia [Unknown]
  - Eyelid ptosis [Unknown]
  - Sensory disturbance [Unknown]
  - Body mass index abnormal [Unknown]
  - Bacterial test positive [Not Recovered/Not Resolved]
  - Fatigue [Unknown]
  - Urinary incontinence [Unknown]
  - Gait disturbance [Unknown]
  - Dyskinesia [Unknown]
  - Visual impairment [Unknown]
  - Neck pain [Unknown]

NARRATIVE: CASE EVENT DATE: 20200909
